FAERS Safety Report 8935382 (Version 1)
Quarter: 2012Q4

REPORT INFORMATION
  Report Type: Spontaneous
  Country: US (occurrence: None)
  Receive Date: 20121127
  Receipt Date: 20121127
  Transmission Date: 20130627
  Serious: Yes (Other)
  Sender: FDA-Public Use
  Company Number: None

PATIENT
  Age: 37 Year
  Sex: Male
  Weight: 81.65 kg

DRUGS (4)
  1. ZOLPIDEM [Suspect]
     Indication: INSOMNIA
     Route: 048
     Dates: start: 20121121, end: 20121122
  2. ZOLPIDEM [Suspect]
     Indication: PAIN
     Route: 048
     Dates: start: 20121121, end: 20121122
  3. ZOLPIDEM [Suspect]
     Indication: INSOMNIA
     Dates: start: 20121122, end: 20121123
  4. ZOLPIDEM [Suspect]
     Indication: PAIN
     Dates: start: 20121122, end: 20121123

REACTIONS (3)
  - Soliloquy [None]
  - Sedation [None]
  - Impaired work ability [None]
